FAERS Safety Report 22596975 (Version 1)
Quarter: 2023Q2

REPORT INFORMATION
  Report Type: Spontaneous
  Country: IT (occurrence: IT)
  Receive Date: 20230613
  Receipt Date: 20230613
  Transmission Date: 20230721
  Serious: Yes (Death, Other)
  Sender: FDA-Public Use
  Company Number: IT-009507513-2306ITA006324

PATIENT

DRUGS (1)
  1. PEMBROLIZUMAB [Suspect]
     Active Substance: PEMBROLIZUMAB
     Indication: Malignant melanoma

REACTIONS (4)
  - Hypertransaminasaemia [Fatal]
  - Immune-mediated myositis [Fatal]
  - Myasthenia gravis [Fatal]
  - Immune-mediated myocarditis [Fatal]
